FAERS Safety Report 22191582 (Version 1)
Quarter: 2023Q2

REPORT INFORMATION
  Report Type: Spontaneous
  Country: US (occurrence: None)
  Receive Date: 20230407
  Receipt Date: 20230407
  Transmission Date: 20230721
  Serious: Yes (Other)
  Sender: FDA-Public Use
  Company Number: None

PATIENT
  Sex: Male

DRUGS (8)
  1. RINVOQ [Suspect]
     Active Substance: UPADACITINIB
     Indication: Rheumatoid arthritis
     Route: 048
     Dates: start: 20201014
  2. CELEBREX [Concomitant]
     Active Substance: CELECOXIB
  3. CLONAZEPAM [Concomitant]
     Active Substance: CLONAZEPAM
  4. FOLIC ACID TAB [Concomitant]
  5. LEXAPRO TAB [Concomitant]
  6. LOSARTAN POT TAB [Concomitant]
  7. MELOXICAM TAB [Concomitant]
  8. METHOTREXATE [Concomitant]
     Active Substance: METHOTREXATE

REACTIONS (4)
  - Rheumatoid arthritis [None]
  - Therapy interrupted [None]
  - Loss of personal independence in daily activities [None]
  - Pain [None]
